FAERS Safety Report 9618370 (Version 1)
Quarter: 2013Q4

REPORT INFORMATION
  Report Type: Other
  Country: JP (occurrence: JP)
  Receive Date: 20131014
  Receipt Date: 20131014
  Transmission Date: 20140711
  Serious: Yes (Death)
  Sender: FDA-Public Use
  Company Number: JP-BRISTOL-MYERS SQUIBB COMPANY-19554344

PATIENT
  Age: 45 Year
  Sex: Male

DRUGS (3)
  1. BRIPLATIN [Suspect]
     Indication: EXTRAGONADAL PRIMARY GERM CELL TUMOUR
  2. IFOSFAMIDE [Suspect]
     Indication: EXTRAGONADAL PRIMARY GERM CELL TUMOUR
  3. VEPESID [Suspect]
     Indication: EXTRAGONADAL PRIMARY GERM CELL TUMOUR

REACTIONS (1)
  - Sepsis [Fatal]
